FAERS Safety Report 17374542 (Version 1)
Quarter: 2020Q1

REPORT INFORMATION
  Report Type: Spontaneous
  Country: US (occurrence: US)
  Receive Date: 20200121
  Receipt Date: 20200121
  Transmission Date: 20200409
  Serious: Yes (Disabling, Other)
  Sender: FDA-Public Use
  Company Number: None

PATIENT
  Age: 86 Year
  Sex: Female
  Weight: 58.97 kg

DRUGS (5)
  1. PROTONIXES [Concomitant]
  2. HALDOL [Suspect]
     Active Substance: HALOPERIDOL
     Indication: MENTAL DISORDER
     Dosage: ?          QUANTITY:5MG/10MG;?
     Dates: start: 20191228, end: 20200101
  3. LOPPESSER [Concomitant]
  4. SEROQUEL [Concomitant]
     Active Substance: QUETIAPINE FUMARATE
  5. NAMENDA [Concomitant]
     Active Substance: MEMANTINE HYDROCHLORIDE

REACTIONS (5)
  - Abdominal pain upper [None]
  - Tremor [None]
  - Eye movement disorder [None]
  - Speech disorder [None]
  - Dyskinesia [None]

NARRATIVE: CASE EVENT DATE: 20191229
